FAERS Safety Report 8246900-6 (Version None)
Quarter: 2012Q1

REPORT INFORMATION
  Report Type: 
  Country: None (occurrence: None)
  Receive Date: 20120330
  Receipt Date: 20120319
  Transmission Date: 20120608
  Serious: Yes (Hospitalization)
  Sender: FDA-Public Use
  Company Number: PR-JNJFOC-20120310036

PATIENT
  Sex: Male

DRUGS (1)
  1. ZYTIGA [Suspect]
     Indication: PROSTATE CANCER METASTATIC
     Dosage: INITIATED APPROXIMATELY IN DEC-2011 OR JAN-2012
     Route: 048

REACTIONS (2)
  - SPINAL CORD DISORDER [None]
  - PROSTATIC SPECIFIC ANTIGEN INCREASED [None]
